FAERS Safety Report 23142469 (Version 2)
Quarter: 2024Q2

REPORT INFORMATION
  Report Type: Spontaneous
  Country: DE (occurrence: DE)
  Receive Date: 20231103
  Receipt Date: 20240418
  Transmission Date: 20240716
  Serious: Yes (Other)
  Sender: FDA-Public Use
  Company Number: DE-NOVOPROD-1134447

PATIENT
  Age: 38 Year
  Sex: Male
  Weight: 91.2 kg

DRUGS (2)
  1. NOVORAPID [Suspect]
     Active Substance: INSULIN ASPART
     Dosage: CARTRIDGE CHANGED
     Route: 058
  2. NOVORAPID [Suspect]
     Active Substance: INSULIN ASPART
     Indication: Type 1 diabetes mellitus
     Dosage: 52 IU
     Route: 058

REACTIONS (4)
  - Diabetic ketoacidosis [Unknown]
  - Product leakage [Unknown]
  - Product physical issue [Unknown]
  - Drug dose omission by device [Unknown]

NARRATIVE: CASE EVENT DATE: 20231021
